FAERS Safety Report 21370833 (Version 2)
Quarter: 2023Q2

REPORT INFORMATION
  Report Type: Spontaneous
  Country: US (occurrence: US)
  Receive Date: 20220923
  Receipt Date: 20230606
  Transmission Date: 20230721
  Serious: No
  Sender: FDA-Public Use
  Company Number: US-PFIZER INC-PV202200068544

PATIENT
  Age: 26 Year
  Sex: Female

DRUGS (1)
  1. XELJANZ XR [Suspect]
     Active Substance: TOFACITINIB CITRATE
     Dosage: UNK (AT NIGHT)

REACTIONS (8)
  - Therapeutic product effect incomplete [Unknown]
  - Fatigue [Unknown]
  - Somnolence [Unknown]
  - Maternal exposure during pregnancy [Unknown]
  - Facial pain [Unknown]
  - Chest pain [Unknown]
  - Back pain [Unknown]
  - Acne [Unknown]

NARRATIVE: CASE EVENT DATE: 20220101
